FAERS Safety Report 8986481 (Version 1)
Quarter: 2012Q4

REPORT INFORMATION
  Report Type: 
  Country: US (occurrence: US)
  Receive Date: 20121226
  Receipt Date: 20121226
  Transmission Date: 20130627
  Serious: Yes (Death)
  Sender: FDA-Public Use
  Company Number: US-ROCHE-1171891

PATIENT
  Age: 6 Year
  Sex: Female

DRUGS (3)
  1. BEVACIZUMAB [Suspect]
     Indication: EPENDYMOMA MALIGNANT
     Route: 065
  2. IRINOTECAN [Concomitant]
     Route: 065
  3. TAMOXIFEN [Concomitant]
     Route: 065

REACTIONS (1)
  - Ependymoma malignant [Fatal]
